FAERS Safety Report 18490851 (Version 1)
Quarter: 2020Q4

REPORT INFORMATION
  Report Type: Spontaneous
  Country: US (occurrence: US)
  Receive Date: 20201111
  Receipt Date: 20201111
  Transmission Date: 20210114
  Serious: No
  Sender: FDA-Public Use
  Company Number: US-009507513-2011USA002403

PATIENT
  Sex: Male

DRUGS (2)
  1. STERILE DILUENT (WATER) [Suspect]
     Active Substance: WATER
     Indication: ILLNESS
     Dosage: UNK
     Route: 030
     Dates: start: 202006
  2. PREGNYL [Suspect]
     Active Substance: CHORIOGONADOTROPIN ALFA
     Indication: ILLNESS
     Dosage: 5000 UNITS, TWICE A WEEK, STRENGTH: 10,000 U/V (10 ML/VL)
     Route: 030
     Dates: start: 202006

REACTIONS (3)
  - Injection site haemorrhage [Unknown]
  - Pain [Unknown]
  - Product use in unapproved indication [Unknown]

NARRATIVE: CASE EVENT DATE: 2020
